FAERS Safety Report 8049805-9 (Version None)
Quarter: 2012Q1

REPORT INFORMATION
  Report Type: 
  Country: None (occurrence: None)
  Receive Date: 20120117
  Receipt Date: 20120110
  Transmission Date: 20120608
  Serious: Yes (Other)
  Sender: FDA-Public Use
  Company Number: US-UCBSA-049444

PATIENT
  Sex: Male

DRUGS (2)
  1. CIMZIA [Suspect]
     Dosage: 0DAY 2WEEKS 4 WEEKS INDUCTION
     Route: 058
  2. CIMZIA [Suspect]
     Route: 058

REACTIONS (3)
  - SWELLING [None]
  - PSORIASIS [None]
  - ARTHRALGIA [None]
